FAERS Safety Report 10409753 (Version 1)
Quarter: 2014Q3

REPORT INFORMATION
  Report Type: Spontaneous
  Country: US (occurrence: None)
  Receive Date: 20140822
  Receipt Date: 20140822
  Transmission Date: 20150326
  Serious: Yes (Other)
  Sender: FDA-Public Use
  Company Number: 2014-US-010285

PATIENT
  Age: 58 Year
  Sex: Male

DRUGS (2)
  1. XYREM [Suspect]
     Active Substance: SODIUM OXYBATE
     Indication: SLEEP APNOEA SYNDROME
     Route: 048
     Dates: start: 200408, end: 2004
  2. XYREM [Suspect]
     Active Substance: SODIUM OXYBATE
     Indication: BIPOLAR DISORDER
     Route: 048
     Dates: start: 200408, end: 2004

REACTIONS (4)
  - Attention deficit/hyperactivity disorder [None]
  - Blood pressure abnormal [None]
  - Diabetes mellitus [None]
  - Off label use [None]
